FAERS Safety Report 6973872-4 (Version None)
Quarter: 2010Q3

REPORT INFORMATION
  Report Type: 
  Country: None (occurrence: None)
  Receive Date: 20100909
  Receipt Date: 20100907
  Transmission Date: 20110219
  Serious: Yes (Hospitalization)
  Sender: FDA-Public Use
  Company Number: B0673385A

PATIENT
  Sex: Male

DRUGS (6)
  1. AUGMENTIN '125' [Suspect]
     Dosage: 1G SINGLE DOSE
     Route: 048
     Dates: start: 20091113, end: 20091113
  2. SUDAFED 12 HOUR [Suspect]
     Dosage: 60MG SINGLE DOSE
     Route: 048
     Dates: start: 20091113, end: 20091113
  3. ACETAMINOPHEN W/ CODEINE [Suspect]
     Route: 048
     Dates: start: 20091113, end: 20091113
  4. PIVALONE [Suspect]
     Dosage: 2UNIT SINGLE DOSE
     Route: 045
     Dates: start: 20091113, end: 20091113
  5. SOLUPRED [Concomitant]
     Dosage: 20MG SINGLE DOSE
     Route: 048
     Dates: start: 20091113
  6. VERAPAMIL HCL [Concomitant]
     Indication: CLUSTER HEADACHE
     Dosage: 4UNIT PER DAY
     Route: 048
     Dates: start: 20050101

REACTIONS (7)
  - DRY SKIN [None]
  - FEELING HOT [None]
  - GENERALISED ERYTHEMA [None]
  - NEUTROPHILIA [None]
  - RASH PUSTULAR [None]
  - SKIN EXFOLIATION [None]
  - TOXIC SKIN ERUPTION [None]
